FAERS Safety Report 6164102-4 (Version None)
Quarter: 2009Q2

REPORT INFORMATION
  Report Type: 
  Country: None (occurrence: None)
  Receive Date: 20090422
  Receipt Date: 20090414
  Transmission Date: 20091009
  Serious: Yes (Other)
  Sender: FDA-Public Use
  Company Number: B0506607A

PATIENT
  Sex: Male
  Weight: 93 kg

DRUGS (6)
  1. AVANDAMET [Suspect]
     Route: 048
     Dates: start: 20070901, end: 20071203
  2. ASPIRIN [Concomitant]
     Indication: RETINAL VASCULAR THROMBOSIS
     Dosage: 325MG PER DAY
     Route: 048
     Dates: start: 19950101, end: 20071129
  3. AMLODIPINE BESYLATE [Concomitant]
     Dosage: 10MG PER DAY
     Route: 048
     Dates: start: 19950101
  4. COAPROVEL [Concomitant]
     Route: 048
     Dates: start: 20000101, end: 20071201
  5. LIPANOR [Concomitant]
     Route: 048
     Dates: start: 19950101, end: 20071129
  6. ALLOPURINOL [Concomitant]
     Dosage: 100MG PER DAY
     Route: 048
     Dates: start: 19950101

REACTIONS (4)
  - ATAXIA [None]
  - CEREBROVASCULAR ACCIDENT [None]
  - HEMIPARESIS [None]
  - PARAESTHESIA [None]
